FAERS Safety Report 17532689 (Version 1)
Quarter: 2020Q1

REPORT INFORMATION
  Report Type: Spontaneous
  Country: US (occurrence: US)
  Receive Date: 20200312
  Receipt Date: 20200312
  Transmission Date: 20200409
  Serious: Yes (Hospitalization, Other)
  Sender: FDA-Public Use
  Company Number: US-009507513-2003USA002483

PATIENT
  Age: 25 Year
  Sex: Female
  Weight: 58.97 kg

DRUGS (1)
  1. NEXPLANON [Suspect]
     Active Substance: ETONOGESTREL
     Dosage: ONE ROD EVERY 3 YEARS
     Route: 059
     Dates: start: 2018

REACTIONS (1)
  - Seizure [Not Recovered/Not Resolved]
